FAERS Safety Report 8837567 (Version 1)
Quarter: 2012Q4

REPORT INFORMATION
  Report Type: 
  Country: BR (occurrence: BR)
  Receive Date: 20121012
  Receipt Date: 20121012
  Transmission Date: 20130627
  Serious: Yes (Other)
  Sender: FDA-Public Use
  Company Number: BR-PFIZER INC-2012252919

PATIENT
  Age: 43 Year
  Sex: Female

DRUGS (2)
  1. FRONTAL [Suspect]
     Indication: MULTIPLE SCLEROSIS
     Dosage: 4 tablets of 1 mg, 1x/day
     Dates: start: 2006
  2. FRONTAL XR [Suspect]
     Indication: MULTIPLE SCLEROSIS
     Dosage: 1 tablet of 1 mg, 2x/day

REACTIONS (4)
  - Drug dependence [Not Recovered/Not Resolved]
  - Off label use [Not Recovered/Not Resolved]
  - Headache [Not Recovered/Not Resolved]
  - Malaise [Not Recovered/Not Resolved]
